FAERS Safety Report 5709037-3 (Version None)
Quarter: 2008Q2

REPORT INFORMATION
  Report Type: 
  Country: None (occurrence: None)
  Receive Date: 20080416
  Receipt Date: 20080416
  Transmission Date: 20081010
  Serious: Yes (Hospitalization)
  Sender: FDA-Public Use
  Company Number: None

PATIENT
  Sex: Female
  Weight: 66.6 kg

DRUGS (2)
  1. DOCETAXEL [Suspect]
     Dosage: 120 MG
     Dates: end: 20070806
  2. CARBOPLATIN [Suspect]
     Dosage: 630 MG
     Dates: end: 20070806

REACTIONS (5)
  - BACTERIAL INFECTION [None]
  - CONFUSIONAL STATE [None]
  - HYPONATRAEMIA [None]
  - MENTAL STATUS CHANGES [None]
  - URINARY TRACT INFECTION [None]
